FAERS Safety Report 4753239-X (Version None)
Quarter: 2005Q3

REPORT INFORMATION
  Report Type: 
  Country: None (occurrence: None)
  Receive Date: 20050826
  Receipt Date: 20050726
  Transmission Date: 20060218
  Serious: Yes (Hospitalization, Other)
  Sender: FDA-Public Use
  Company Number: PHFR2005GB02590

PATIENT
  Age: 53 Year
  Sex: Female
  Weight: 157 kg

DRUGS (8)
  1. CLOZARIL [Suspect]
     Dosage: 200 MG ACCIDENTAL O/D
     Route: 048
     Dates: start: 20050726
  2. CARBAMAZEPINE [Concomitant]
     Indication: BIPOLAR DISORDER
     Dosage: 1200 MG/DAY
     Route: 048
  3. OLANZAPINE [Concomitant]
     Indication: BIPOLAR DISORDER
     Dosage: 10 MG/DAY
     Route: 048
  4. LORAZEPAM [Concomitant]
     Dosage: 3 MG/DAY
     Route: 048
  5. TETRABENAZINE [Concomitant]
     Indication: TARDIVE DYSKINESIA
     Dosage: 100 MG/DAY
     Route: 048
  6. VENLAFAXINE [Concomitant]
     Indication: BIPOLAR DISORDER
     Dosage: 75 MG/DAY
     Route: 048
  7. ZOPICLONE [Concomitant]
     Dosage: 7.5 MG/DAY
     Route: 048
  8. LEVOTHYROXINE [Concomitant]
     Indication: HYPOTHYROIDISM
     Dosage: 75 UG/DAY
     Route: 048

REACTIONS (4)
  - ACCIDENTAL EXPOSURE [None]
  - ACCIDENTAL OVERDOSE [None]
  - SEDATION [None]
  - SOMNOLENCE [None]
